FAERS Safety Report 7231648-7 (Version None)
Quarter: 2011Q1

REPORT INFORMATION
  Report Type: 
  Country: None (occurrence: None)
  Receive Date: 20110118
  Receipt Date: 20110113
  Transmission Date: 20110831
  Serious: No
  Sender: FDA-Public Use
  Company Number: US-PFIZER INC-2006143070

PATIENT
  Sex: Female
  Weight: 61.23 kg

DRUGS (5)
  1. ZOCOR [Concomitant]
  2. XALATAN [Suspect]
     Indication: GLAUCOMA
     Dosage: UNK
     Route: 047
  3. ATENOLOL [Concomitant]
  4. AUGMENTIN '125' [Suspect]
  5. VALSARTAN [Concomitant]

REACTIONS (3)
  - ARTHRALGIA [None]
  - EYE IRRITATION [None]
  - MUSCULOSKELETAL STIFFNESS [None]
